FAERS Safety Report 9691781 (Version 1)
Quarter: 2013Q4

REPORT INFORMATION
  Report Type: Spontaneous
  Country: US (occurrence: US)
  Receive Date: 20131115
  Receipt Date: 20131115
  Transmission Date: 20140711
  Serious: No
  Sender: FDA-Public Use
  Company Number: US-009507513-1311USA005474

PATIENT
  Age: 10 Year
  Sex: Male

DRUGS (1)
  1. SINGULAIR [Suspect]
     Indication: ASTHMA
     Dosage: ONE AT BEDTIME
     Route: 048

REACTIONS (4)
  - Abdominal pain upper [Unknown]
  - Back pain [Unknown]
  - Chromaturia [Unknown]
  - Product substitution issue [Unknown]
